FAERS Safety Report 16904155 (Version 1)
Quarter: 2019Q4

REPORT INFORMATION
  Report Type: Spontaneous
  Country: BR (occurrence: BR)
  Receive Date: 20191010
  Receipt Date: 20191010
  Transmission Date: 20200122
  Serious: Yes (Hospitalization, Other)
  Sender: FDA-Public Use
  Company Number: BR-MYLANLABS-2019M1094556

PATIENT
  Sex: Male

DRUGS (4)
  1. LEPONEX 100 MG [Suspect]
     Active Substance: CLOZAPINE
     Indication: SCHIZOPHRENIA
     Dosage: 300 MILLIGRAM, QD
  2. PINAZAN [Suspect]
     Active Substance: CLOZAPINE
     Indication: SCHIZOPHRENIA
     Dosage: UNK
  3. PINAZAN [Suspect]
     Active Substance: CLOZAPINE
     Dosage: 600 MILLIGRAM
  4. PINAZAN [Suspect]
     Active Substance: CLOZAPINE
     Dosage: 800 MILLIGRAM

REACTIONS (2)
  - Schizophrenia [Unknown]
  - Therapy non-responder [Not Recovered/Not Resolved]

NARRATIVE: CASE EVENT DATE: 2019
